FAERS Safety Report 8011095-0 (Version None)
Quarter: 2011Q4

REPORT INFORMATION
  Report Type: 
  Country: None (occurrence: None)
  Receive Date: 20111228
  Receipt Date: 20111215
  Transmission Date: 20120403
  Serious: Yes (Death, Hospitalization)
  Sender: FDA-Public Use
  Company Number: GB-ROCHE-748662

PATIENT
  Sex: Male

DRUGS (12)
  1. BELATACEPT [Suspect]
     Indication: PROPHYLAXIS AGAINST TRANSPLANT REJECTION
     Route: 042
     Dates: start: 20020926, end: 20100913
  2. BELATACEPT [Suspect]
     Route: 042
  3. CYCLIZINE [Concomitant]
  4. FERROUS SULFATE TAB [Concomitant]
  5. ALBUTEROL SULFATE AUTOHALER [Concomitant]
  6. PREDNISOLONE [Suspect]
     Indication: PROPHYLAXIS AGAINST TRANSPLANT REJECTION
     Route: 065
  7. ACETAMINOPHEN [Concomitant]
  8. VALSARTAN [Concomitant]
  9. FLUTICASONE FUROATE [Concomitant]
  10. OXITROPIUM [Concomitant]
  11. MYCOPHENOLATE MOFETIL (CELLCEPT) [Suspect]
     Indication: PROPHYLAXIS AGAINST TRANSPLANT REJECTION
     Route: 065
  12. EZETIMIBE [Concomitant]

REACTIONS (6)
  - SALIVARY GLAND MASS [None]
  - SPINAL CORD COMPRESSION [None]
  - CARDIAC ARREST [None]
  - UROSEPSIS [None]
  - CERVICAL MYELOPATHY [None]
  - URINARY TRACT INFECTION [None]
